FAERS Safety Report 17064058 (Version 2)
Quarter: 2020Q1

REPORT INFORMATION
  Report Type: Spontaneous
  Country: US (occurrence: US)
  Receive Date: 20191122
  Receipt Date: 20200120
  Transmission Date: 20200409
  Serious: Yes (Other)
  Sender: FDA-Public Use
  Company Number: US-PFIZER INC-2019501277

PATIENT
  Age: 68 Year
  Sex: Female
  Weight: 106.58 kg

DRUGS (1)
  1. XELJANZ XR [Suspect]
     Active Substance: TOFACITINIB CITRATE
     Indication: PSORIATIC ARTHROPATHY
     Dosage: 11 MG, DAILY
     Dates: start: 20190909, end: 20191008

REACTIONS (3)
  - Blood disorder [Unknown]
  - Haemorrhage [Unknown]
  - Full blood count abnormal [Unknown]
